FAERS Safety Report 19235465 (Version 2)
Quarter: 2021Q4

REPORT INFORMATION
  Report Type: Spontaneous
  Country: US (occurrence: US)
  Receive Date: 20210510
  Receipt Date: 20211028
  Transmission Date: 20220303
  Serious: No
  Sender: FDA-Public Use
  Company Number: US-ELI_LILLY_AND_COMPANY-US202105003135

PATIENT
  Age: 40 Year
  Sex: Female

DRUGS (3)
  1. TALTZ [Suspect]
     Active Substance: IXEKIZUMAB
     Indication: Product used for unknown indication
     Dosage: 80 MG, UNKNOWN
     Route: 058
     Dates: start: 20191121
  2. TALTZ [Suspect]
     Active Substance: IXEKIZUMAB
     Dosage: 80 MG, UNKNOWN
     Route: 058
     Dates: start: 201912
  3. TALTZ [Suspect]
     Active Substance: IXEKIZUMAB
     Dosage: 80 MG, UNKNOWN
     Route: 058

REACTIONS (10)
  - Cough [Unknown]
  - Wheezing [Unknown]
  - Rhinorrhoea [Unknown]
  - Throat irritation [Unknown]
  - Dry throat [Unknown]
  - Diabetes mellitus [Unknown]
  - COVID-19 [Unknown]
  - Pneumonia [Unknown]
  - Injection site swelling [Unknown]
  - Injection site reaction [Unknown]

NARRATIVE: CASE EVENT DATE: 20210201
